FAERS Safety Report 4444107-1 (Version None)
Quarter: 2004Q3

REPORT INFORMATION
  Report Type: 
  Country: None (occurrence: None)
  Receive Date: 20040729
  Receipt Date: 20030915
  Transmission Date: 20050211
  Serious: Yes (Death)
  Sender: FDA-Public Use
  Company Number: USA-2003-0009573

PATIENT
  Age: 38 Year
  Sex: Male

DRUGS (7)
  1. MORPHINE SULFATE [Suspect]
  2. HEROIN (DIAMORPHINE) [Suspect]
  3. PAXIL [Suspect]
  4. CHLORPROMAZINE [Suspect]
  5. ZYPREXA [Suspect]
  6. CLONAZEPAM [Suspect]
  7. INSULIN [Concomitant]

REACTIONS (2)
  - ACCIDENTAL OVERDOSE [None]
  - MULTIPLE DRUG OVERDOSE [None]
